FAERS Safety Report 12896756 (Version 1)
Quarter: 2016Q4

REPORT INFORMATION
  Report Type: Spontaneous
  Country: IN (occurrence: IN)
  Receive Date: 20161031
  Receipt Date: 20161031
  Transmission Date: 20170207
  Serious: Yes (Other)
  Sender: FDA-Public Use
  Company Number: IN-MYLANLABS-2016M1046608

PATIENT

DRUGS (3)
  1. FIBRINOGEN [Suspect]
     Active Substance: FIBRINOGEN HUMAN
     Indication: HYPOFIBRINOGENAEMIA
     Dosage: EVERY FOURTH DAY; RECEIVED 2.5G OF FIBRINOGEN CONCENTRATE PRIOR TO SURGERY
     Route: 042
  2. FIBRINOGEN [Suspect]
     Active Substance: FIBRINOGEN HUMAN
     Dosage: AFTER 2.5G, SHE RECEIVED 1.5G OF FIBRINOGEN CONCENTRATE
     Route: 042
  3. TRANEXAMIC ACID. [Suspect]
     Active Substance: TRANEXAMIC ACID
     Indication: PRODUCT USED FOR UNKNOWN INDICATION
     Route: 050

REACTIONS (3)
  - Normal newborn [Recovered/Resolved]
  - Exposure during pregnancy [Recovered/Resolved]
  - Haemorrhage [Recovering/Resolving]
